FAERS Safety Report 13046841 (Version 1)
Quarter: 2016Q4

REPORT INFORMATION
  Report Type: Spontaneous
  Country: JP (occurrence: JP)
  Receive Date: 20161220
  Receipt Date: 20161220
  Transmission Date: 20170207
  Serious: Yes (Hospitalization, Other)
  Sender: FDA-Public Use
  Company Number: JP-ELI_LILLY_AND_COMPANY-JP201611009976

PATIENT
  Age: 48 Year
  Sex: Male

DRUGS (3)
  1. ERBITUX [Suspect]
     Active Substance: CETUXIMAB
     Indication: COLORECTAL CANCER
     Dosage: 720 MG, SINGLE
     Route: 042
     Dates: start: 20161020, end: 20161020
  2. ERBITUX [Suspect]
     Active Substance: CETUXIMAB
     Dosage: 450 MG, UNKNOWN
     Route: 042
     Dates: start: 20161027, end: 20161027
  3. IRINOTECAN                         /01280202/ [Suspect]
     Active Substance: IRINOTECAN
     Indication: COLORECTAL CANCER
     Dosage: 270 MG, UNKNOWN
     Route: 042
     Dates: start: 20161020, end: 20161020

REACTIONS (2)
  - Ascites [Recovered/Resolved]
  - Acute kidney injury [Recovered/Resolved]
